FAERS Safety Report 17765131 (Version 1)
Quarter: 2020Q2

REPORT INFORMATION
  Report Type: Spontaneous
  Country: US (occurrence: US)
  Receive Date: 20200511
  Receipt Date: 20200511
  Transmission Date: 20200714
  Serious: No
  Sender: FDA-Public Use
  Company Number: US-CELGENEUS-USA-20200501875

PATIENT
  Sex: Female
  Weight: 73 kg

DRUGS (1)
  1. APREMILAST [Suspect]
     Active Substance: APREMILAST
     Indication: PSORIASIS
     Dosage: 15 MILLIGRAM(1/2 TABLET)
     Route: 048
     Dates: start: 202001

REACTIONS (1)
  - Eructation [Unknown]

NARRATIVE: CASE EVENT DATE: 2020
